FAERS Safety Report 26086052 (Version 1)
Quarter: 2025Q4

REPORT INFORMATION
  Report Type: Report from Study
  Country: US (occurrence: US)
  Receive Date: 20251125
  Receipt Date: 20251125
  Transmission Date: 20260117
  Serious: Yes (Other)
  Sender: ROCHE
  Company Number: US-ROCHE-10000421204

PATIENT
  Age: 79 Year
  Sex: Male

DRUGS (2)
  1. AVASTIN [Suspect]
     Active Substance: BEVACIZUMAB
     Indication: Neovascular age-related macular degeneration
     Route: 050
     Dates: start: 20250618
  2. VABYSMO [Concomitant]
     Active Substance: FARICIMAB-SVOA
     Dates: start: 20250516

REACTIONS (5)
  - Drug hypersensitivity [Recovered/Resolved]
  - Pain [Recovered/Resolved]
  - Eye irritation [Recovered/Resolved]
  - Off label use [Unknown]
  - Neovascular age-related macular degeneration [Recovered/Resolved]

NARRATIVE: CASE EVENT DATE: 20250618
